FAERS Safety Report 7864352-2 (Version None)
Quarter: 2011Q4

REPORT INFORMATION
  Report Type: 
  Country: None (occurrence: None)
  Receive Date: 20111028
  Receipt Date: 20110428
  Transmission Date: 20120403
  Serious: No
  Sender: FDA-Public Use
  Company Number: US-ASTRAZENECA-2011SE24485

PATIENT
  Age: 52 Year
  Sex: Male

DRUGS (2)
  1. TENORETIC 100 [Suspect]
     Route: 048
  2. LISINOPRIL [Suspect]
     Route: 048

REACTIONS (3)
  - DIZZINESS [None]
  - COUGH [None]
  - EXPIRED DRUG ADMINISTERED [None]
